FAERS Safety Report 8582572-9 (Version None)
Quarter: 2012Q3

REPORT INFORMATION
  Report Type: 
  Country: None (occurrence: None)
  Receive Date: 20120809
  Receipt Date: 20120806
  Transmission Date: 20120928
  Serious: No
  Sender: FDA-Public Use
  Company Number: US-BAYER-2012-080399

PATIENT
  Age: 41 Year
  Sex: Male

DRUGS (2)
  1. EOVIST [Suspect]
     Indication: LIVER FUNCTION TEST ABNORMAL
  2. EOVIST [Suspect]
     Indication: IMAGING PROCEDURE
     Dosage: 8 ML, ONCE

REACTIONS (1)
  - URTICARIA [None]
